FAERS Safety Report 10759644 (Version 1)
Quarter: 2015Q1

REPORT INFORMATION
  Report Type: Spontaneous
  Country: US (occurrence: US)
  Receive Date: 20150203
  Receipt Date: 20150203
  Transmission Date: 20150721
  Serious: Yes (Other)
  Sender: FDA-Public Use
  Company Number: US-ABBVIE-15P-163-1338872-00

PATIENT
  Age: 55 Year
  Sex: Male

DRUGS (1)
  1. ANDROGEL [Suspect]
     Active Substance: TESTOSTERONE
     Indication: PRODUCT USED FOR UNKNOWN INDICATION
     Route: 061
     Dates: end: 201305

REACTIONS (5)
  - Polycythaemia [Unknown]
  - Transient ischaemic attack [Recovered/Resolved]
  - Impaired work ability [Not Recovered/Not Resolved]
  - Haemoglobin increased [Recovered/Resolved]
  - Acne cystic [Recovered/Resolved]
